FAERS Safety Report 8937507 (Version 1)
Quarter: 2012Q4

REPORT INFORMATION
  Report Type: Spontaneous
  Country: US (occurrence: None)
  Receive Date: 20121128
  Receipt Date: 20121128
  Transmission Date: 20130627
  Serious: Yes (Hospitalization)
  Sender: FDA-Public Use
  Company Number: None

PATIENT
  Age: 64 Year
  Sex: Male
  Weight: 128.82 kg

DRUGS (6)
  1. EFFIENT 10 MG ELI LILLY + CO [Suspect]
     Indication: CORONARY ARTERY DISEASE
     Route: 048
  2. EFFIENT 10 MG ELI LILLY + CO [Suspect]
     Indication: POST MI
     Route: 048
  3. EFFIENT 10 MG ELI LILLY + CO [Suspect]
     Indication: COROARY ARTERY STENT PLACEMENT
     Route: 048
  4. ASPIRIN [Suspect]
     Indication: CORONARY ARTERY DISEASE
     Route: 048
  5. ASPIRIN [Suspect]
     Indication: POST MI
     Route: 048
  6. ASPIRIN [Suspect]
     Indication: CORONARY ARTERIAL STENT INSERTION
     Route: 048

REACTIONS (1)
  - Gastrointestinal haemorrhage [None]
